FAERS Safety Report 10169207 (Version 1)
Quarter: 2014Q2

REPORT INFORMATION
  Report Type: Spontaneous
  Country: US (occurrence: US)
  Receive Date: 20140513
  Receipt Date: 20140513
  Transmission Date: 20141212
  Serious: No
  Sender: FDA-Public Use
  Company Number: US-009507513-1404USA015065

PATIENT
  Age: 10 Year
  Sex: Male

DRUGS (2)
  1. CLARITIN CHEWABLE TABLETS [Suspect]
     Indication: SEASONAL ALLERGY
     Dosage: UNK, QD
     Route: 048
     Dates: start: 20140410
  2. CLARITIN CHEWABLE TABLETS [Suspect]
     Dosage: UNK, BID
     Route: 048
     Dates: start: 20140416

REACTIONS (1)
  - Overdose [Unknown]
